FAERS Safety Report 8935400 (Version 1)
Quarter: 2012Q4

REPORT INFORMATION
  Report Type: Spontaneous
  Country: PL (occurrence: None)
  Receive Date: 20121119
  Receipt Date: 20121119
  Transmission Date: 20130627
  Serious: Yes (Hospitalization)
  Sender: FDA-Public Use
  Company Number: 2012-19147

PATIENT
  Age: 76 Year
  Sex: Male

DRUGS (7)
  1. DICLOFENAC [Suspect]
     Indication: DRUG USE FOR UNKNOWN INDICATION
  2. SAXAGLIPTIN [Suspect]
     Indication: TYPE 2 DIABETES MELLITUS
  3. MIXTARD [Suspect]
     Indication: TYPE 2 DIABETES MELLITUS
  4. METFORMAX [Suspect]
     Indication: TYPE 2 DIABETES MELLITUS
  5. ACENOCOUMAROL [Suspect]
     Indication: DRUG USE FOR UNKNOWN INDICATION
  6. PLACEBO [Concomitant]
  7. ASPIRIN (ACETYLSALICYLIC ACID) [Concomitant]

REACTIONS (2)
  - Haemorrhagic diathesis [None]
  - International normalised ratio increased [None]
